FAERS Safety Report 20016748 (Version 1)
Quarter: 2021Q4

REPORT INFORMATION
  Report Type: Spontaneous
  Country: US (occurrence: None)
  Receive Date: 20211104
  Receipt Date: 20211104
  Transmission Date: 20220303
  Serious: Yes (Hospitalization)
  Sender: FDA-Public Use
  Company Number: None

PATIENT
  Age: 66 Year
  Sex: Male
  Weight: 80.29 kg

DRUGS (2)
  1. BARICITINIB [Suspect]
     Active Substance: BARICITINIB
     Indication: Pneumonia
     Dosage: FREQUENCY : DAILY;?
     Route: 048
     Dates: start: 20210903, end: 20210913
  2. BARICITINIB [Suspect]
     Active Substance: BARICITINIB
     Indication: COVID-19

REACTIONS (6)
  - Pneumonia [None]
  - Pneumonia [None]
  - Pseudomonas infection [None]
  - Death [None]
  - Enterococcal infection [None]
  - Bacteraemia [None]

NARRATIVE: CASE EVENT DATE: 20210914
